FAERS Safety Report 25578734 (Version 2)
Quarter: 2025Q3

REPORT INFORMATION
  Report Type: Report from Study
  Country: CA (occurrence: CA)
  Receive Date: 20250718
  Receipt Date: 20250819
  Transmission Date: 20251021
  Serious: Yes (Other)
  Sender: TAKEDA
  Company Number: CA-TAKEDA-2025TUS063726

PATIENT
  Sex: Female

DRUGS (6)
  1. VEDOLIZUMAB [Suspect]
     Active Substance: VEDOLIZUMAB
     Indication: Crohn^s disease
     Dates: start: 20240712, end: 20250530
  2. BUDESONIDE [Concomitant]
     Active Substance: BUDESONIDE
  3. ENTOCORT [Concomitant]
     Active Substance: BUDESONIDE
  4. Cortiment [Concomitant]
  5. SYNTHROID [Concomitant]
     Active Substance: LEVOTHYROXINE SODIUM
     Indication: Hypothyroidism
  6. IRON [Concomitant]
     Active Substance: IRON
     Indication: Anaemia

REACTIONS (2)
  - Crohn^s disease [Unknown]
  - Drug ineffective [Unknown]
